FAERS Safety Report 19400206 (Version 2)
Quarter: 2021Q3

REPORT INFORMATION
  Report Type: Spontaneous
  Country: US (occurrence: US)
  Receive Date: 20210610
  Receipt Date: 20210727
  Transmission Date: 20211014
  Serious: No
  Sender: FDA-Public Use
  Company Number: US-AIMMUNE THERAPEUTICS, INC.-2021AIMT00322

PATIENT

DRUGS (3)
  1. PALFORZIA [Suspect]
     Active Substance: PEANUT
     Indication: FOOD ALLERGY
     Dosage: 240 MG, 1X/DAY
     Route: 048
     Dates: start: 20210514, end: 20210526
  2. PALFORZIA [Suspect]
     Active Substance: PEANUT
     Dosage: 240 UNK, ONCE,LAST DOSE OF PALFORZIA PRIRO TO EVENT ONSET
     Route: 048
     Dates: start: 20210525, end: 20210525
  3. PALFORZIA [Suspect]
     Active Substance: PEANUT
     Dosage: 120,180 AND 240 MG, 1X/DAY
     Route: 048
     Dates: start: 20210527, end: 20210617

REACTIONS (2)
  - Viral infection [Recovered/Resolved]
  - Vomiting [Recovered/Resolved]

NARRATIVE: CASE EVENT DATE: 20210526
